FAERS Safety Report 5748621-8 (Version None)
Quarter: 2008Q2

REPORT INFORMATION
  Report Type: 
  Country: None (occurrence: None)
  Receive Date: 20080523
  Receipt Date: 20080514
  Transmission Date: 20081010
  Serious: Yes (Other)
  Sender: FDA-Public Use
  Company Number: DK-PFIZER INC-2008043210

PATIENT
  Age: 54 Year
  Sex: Female

DRUGS (8)
  1. PREGABALIN [Suspect]
     Route: 048
  2. OMEPRAZOLE [Suspect]
  3. CALCIUM CARBONATE [Concomitant]
  4. PHENPROCOUMON [Concomitant]
  5. ESTRADIOL [Concomitant]
  6. LEVOCETIRIZINE [Concomitant]
  7. DESLORATADINE [Concomitant]
  8. TRIAMCINOLONE [Concomitant]

REACTIONS (2)
  - DEAFNESS [None]
  - PARAESTHESIA [None]
